FAERS Safety Report 20714552 (Version 6)
Quarter: 2022Q3

REPORT INFORMATION
  Report Type: Report from Study
  Country: US (occurrence: None)
  Receive Date: 20220415
  Receipt Date: 20220708
  Transmission Date: 20221026
  Serious: Yes (Hospitalization)
  Sender: FDA-Public Use
  Company Number: US-ROCHE-3071267

PATIENT
  Age: 88 Year
  Sex: Male
  Weight: 60.3 kg

DRUGS (16)
  1. CEVOSTAMAB [Suspect]
     Active Substance: CEVOSTAMAB
     Indication: Plasma cell myeloma
     Dosage: DOSE LAST STUDY DRUG ADMIN PRIOR SAE/AE: 90 MG?TOTAL VOLUME PRIOR SAE/AE: 80 ML?START DATE OF MOST R
     Route: 042
     Dates: start: 20220111
  2. TOCILIZUMAB [Suspect]
     Active Substance: TOCILIZUMAB
     Indication: Plasma cell myeloma
     Route: 042
     Dates: start: 20220120
  3. SUCRALFATE [Concomitant]
     Active Substance: SUCRALFATE
     Indication: Dyspepsia
     Route: 048
     Dates: start: 20220201
  4. DORZOLAMIDE [Concomitant]
     Active Substance: DORZOLAMIDE
     Indication: Glaucoma
     Route: 047
     Dates: start: 20220211, end: 20220408
  5. NYSTATIN [Concomitant]
     Active Substance: NYSTATIN
     Indication: Fungal skin infection
     Route: 048
     Dates: start: 20220216, end: 20220405
  6. MEGESTROL [Concomitant]
     Active Substance: MEGESTROL
     Indication: Weight decreased
     Route: 048
     Dates: start: 20220308, end: 20220408
  7. MEGESTROL [Concomitant]
     Active Substance: MEGESTROL
     Route: 048
     Dates: start: 20220405, end: 20220408
  8. DENOSUMAB [Concomitant]
     Active Substance: DENOSUMAB
     Indication: Hypercalcaemia
     Route: 058
     Dates: start: 20220308, end: 20220308
  9. VASOPRESSIN [Concomitant]
     Active Substance: VASOPRESSIN
     Indication: Hypotension
  10. HYDROCODONE [Concomitant]
     Active Substance: HYDROCODONE
     Indication: Back pain
     Route: 048
     Dates: start: 20220127, end: 20220509
  11. FENTANYL [Concomitant]
     Active Substance: FENTANYL
     Indication: Back pain
     Dosage: 1 OTHER
     Route: 062
     Dates: start: 20220405, end: 20220405
  12. TOLVAPTAN [Concomitant]
     Active Substance: TOLVAPTAN
     Indication: Hyponatraemia
     Route: 048
     Dates: start: 20220406, end: 20220408
  13. LEVOTHYROXINE [Concomitant]
     Active Substance: LEVOTHYROXINE
     Indication: Hypothyroidism
     Route: 048
     Dates: start: 20220406, end: 20220408
  14. LATANOPROST [Concomitant]
     Active Substance: LATANOPROST
     Indication: Glaucoma
     Dosage: 1 OTHER
     Route: 047
     Dates: start: 20220405, end: 20220407
  15. BROMFENAC [Concomitant]
     Active Substance: BROMFENAC SODIUM
     Indication: Glaucoma
     Dosage: 1 OTHER
     Route: 047
     Dates: start: 20220117
  16. HUMAN RED BLOOD CELL [Concomitant]
     Active Substance: HUMAN RED BLOOD CELL
     Indication: Anaemia
     Dosage: 1 OTHER
     Route: 042
     Dates: start: 20220322, end: 20220322

REACTIONS (1)
  - Fatigue [Recovered/Resolved]

NARRATIVE: CASE EVENT DATE: 20220405
